FAERS Safety Report 21709080 (Version 6)
Quarter: 2023Q4

REPORT INFORMATION
  Report Type: Spontaneous
  Country: US (occurrence: US)
  Receive Date: 20221210
  Receipt Date: 20231113
  Transmission Date: 20240110
  Serious: Yes (Other)
  Sender: FDA-Public Use
  Company Number: US-AMGEN-USASP2022212638

PATIENT
  Age: 54 Year
  Sex: Female

DRUGS (40)
  1. OTEZLA [Suspect]
     Active Substance: APREMILAST
     Indication: Psoriatic arthropathy
     Dosage: 30 MILLIGRAM, BID
     Route: 048
     Dates: start: 20220201
  2. ALBUTEROL [Concomitant]
     Active Substance: ALBUTEROL
     Dosage: 4 MILLIGRAM/ 0.083 PERCENT
     Route: 065
  3. ATORVASTATIN [Concomitant]
     Active Substance: ATORVASTATIN
     Dosage: 40 MILLIGRAM
     Route: 065
  4. VITAMIN B COMPLEX [Concomitant]
     Active Substance: CYANOCOBALAMIN\DEXPANTHENOL\NIACINAMIDE\PYRIDOXINE HYDROCHLORIDE\RIBOFLAVIN 5^-PHOSPHATE SODIUM\THIA
     Dosage: UNK
     Route: 065
  5. CALCIUM\VITAMIN D [Concomitant]
     Active Substance: CALCIUM\VITAMIN D
     Dosage: 500-200
     Route: 065
  6. CHLORHEXIDINE GLUCONATE [Concomitant]
     Active Substance: CHLORHEXIDINE GLUCONATE
     Dosage: UNK
     Route: 065
  7. CLARINEX [Concomitant]
     Active Substance: DESLORATADINE
     Dosage: 5 MILLIGRAM
     Route: 065
  8. CLARITHROMYCIN [Concomitant]
     Active Substance: CLARITHROMYCIN
     Dosage: 500 MILLIGRAM
     Route: 065
  9. CLARITIN [Concomitant]
     Active Substance: LORATADINE
     Dosage: 5 MILLIGRAM
     Route: 065
  10. CRESTOR [Concomitant]
     Active Substance: ROSUVASTATIN CALCIUM
     Dosage: 10 MILLIGRAM
     Route: 065
  11. ESTRADIOL [Concomitant]
     Active Substance: ESTRADIOL
     Dosage: UNK
     Route: 065
  12. EZETIMIBE [Concomitant]
     Active Substance: EZETIMIBE
     Dosage: 10 MILLIGRAM
     Route: 065
  13. FLONASE [Concomitant]
     Active Substance: FLUTICASONE PROPIONATE
     Dosage: 50 MICROGRAM
     Route: 065
  14. INTRAROSA [Concomitant]
     Active Substance: PRASTERONE
     Dosage: 6.5 MILLIGRAM
     Route: 065
  15. MAGNES SULF [Concomitant]
     Dosage: 400 MILLIGRAM
     Route: 065
  16. METFORMIN [Concomitant]
     Active Substance: METFORMIN HYDROCHLORIDE
     Dosage: 500 MILLIGRAM
     Route: 065
  17. MISOPROSTOL [Concomitant]
     Active Substance: MISOPROSTOL
     Dosage: 200 MICROGRAM
     Route: 065
  18. MONTELUKAST [Concomitant]
     Active Substance: MONTELUKAST SODIUM
     Dosage: 10 MILLIGRAM
     Route: 065
  19. MYRBETRIQ [Concomitant]
     Active Substance: MIRABEGRON
     Dosage: 25 MILLIGRAM/ 50 MILLIGRAM
     Route: 065
  20. NASONEX [Concomitant]
     Active Substance: MOMETASONE FUROATE
     Dosage: 50 MICROGRAM
     Route: 065
  21. OMEPRAZOLE [Concomitant]
     Active Substance: OMEPRAZOLE
     Dosage: 20 MILLIGRAM
     Route: 065
  22. PREDNISONE [Concomitant]
     Active Substance: PREDNISONE
     Dosage: 10 MILLIGRAM
     Route: 065
  23. SINGULAIR [Concomitant]
     Active Substance: MONTELUKAST SODIUM
     Dosage: 5 MILLIGRAM
     Route: 065
  24. UBRELVY [Concomitant]
     Active Substance: UBROGEPANT
     Dosage: 50 MILLIGRAM
     Route: 065
  25. Vitamin c complex [Concomitant]
     Dosage: 500 MILLIGRAM
     Route: 065
  26. EPIPEN [Concomitant]
     Active Substance: EPINEPHRINE
     Dosage: 0.3 MILLIGRAM
     Route: 065
  27. ZYRTEC [Concomitant]
     Active Substance: CETIRIZINE HYDROCHLORIDE
     Dosage: 10 MILLIGRAM
     Route: 065
  28. SYMBICORT [Concomitant]
     Active Substance: BUDESONIDE\FORMOTEROL FUMARATE DIHYDRATE
     Dosage: 160-4.5/ 80-4.5
     Route: 065
  29. QVAR [Concomitant]
     Active Substance: BECLOMETHASONE DIPROPIONATE
     Dosage: UNK
     Route: 065
  30. MANGANESE OXIDE [Concomitant]
     Dosage: 400 MILLIGRAM
     Route: 065
  31. RESTASIS [Concomitant]
     Active Substance: CYCLOSPORINE
     Dosage: UNK
     Route: 065
  32. ALLEGRA [Concomitant]
     Active Substance: FEXOFENADINE HYDROCHLORIDE
     Dosage: 30 MILLIGRAM
     Route: 065
  33. AZELASTINE [Concomitant]
     Active Substance: AZELASTINE\AZELASTINE HYDROCHLORIDE
     Dosage: UNK
     Route: 065
  34. CIPROFLOXACIN [Concomitant]
     Active Substance: CIPROFLOXACIN
     Dosage: 500 MILLIGRAM
     Route: 065
  35. MUCINEX [Concomitant]
     Active Substance: GUAIFENESIN
     Dosage: 1200 MILLIGRAM
     Route: 065
  36. MULTIVITAMIN IRON [Concomitant]
     Dosage: UNK
     Route: 065
  37. NURTEC ODT [Concomitant]
     Active Substance: RIMEGEPANT SULFATE
     Dosage: 75 MILLIGRAM
     Route: 065
  38. ONDANSETRON [Concomitant]
     Active Substance: ONDANSETRON
     Dosage: 4 MILLIGRAM
     Route: 065
  39. SPIRIVA [Concomitant]
     Active Substance: TIOTROPIUM BROMIDE MONOHYDRATE
     Dosage: 2.5 MICROGRAM
     Route: 065
  40. XOLAIR [Concomitant]
     Active Substance: OMALIZUMAB
     Dosage: 150 MILLIGRAM PER MILLILITRE
     Route: 065

REACTIONS (4)
  - Psoriatic arthropathy [Not Recovered/Not Resolved]
  - Oral surgery [Unknown]
  - Urinary tract infection [Unknown]
  - Therapeutic product effect incomplete [Not Recovered/Not Resolved]

NARRATIVE: CASE EVENT DATE: 20220101
